FAERS Safety Report 17826191 (Version 3)
Quarter: 2020Q2

REPORT INFORMATION
  Report Type: Spontaneous
  Country: IT (occurrence: IT)
  Receive Date: 20200526
  Receipt Date: 20200602
  Transmission Date: 20200714
  Serious: Yes (Life-Threatening, Hospitalization, Other)
  Sender: FDA-Public Use
  Company Number: IT-PFIZER INC-2020206666

PATIENT
  Age: 93 Year
  Sex: Female

DRUGS (9)
  1. METHYLPREDNISOLONE SODIUM SUCCINATE. [Suspect]
     Active Substance: METHYLPREDNISOLONE SODIUM SUCCINATE
     Indication: PERIPHERAL VENOUS DISEASE
  2. FONDAPARINUX [Suspect]
     Active Substance: FONDAPARINUX
     Indication: VENOUS OCCLUSION
     Dosage: 7.5 MG, 1X/DAY
  3. FONDAPARINUX [Suspect]
     Active Substance: FONDAPARINUX
     Indication: VENOUS THROMBOSIS
     Dosage: 5 MG, 1X/DAY
  4. METHYLPREDNISOLONE SODIUM SUCCINATE. [Suspect]
     Active Substance: METHYLPREDNISOLONE SODIUM SUCCINATE
     Indication: UPPER RESPIRATORY TRACT INFECTION
  5. BUDESONIDE. [Suspect]
     Active Substance: BUDESONIDE
     Indication: CHRONIC OBSTRUCTIVE PULMONARY DISEASE
     Dosage: UNK
     Route: 055
  6. BUDESONIDE. [Suspect]
     Active Substance: BUDESONIDE
     Indication: UPPER RESPIRATORY TRACT INFECTION
  7. BUDESONIDE. [Suspect]
     Active Substance: BUDESONIDE
     Indication: PERIPHERAL VENOUS DISEASE
  8. FONDAPARINUX [Suspect]
     Active Substance: FONDAPARINUX
     Indication: ANTICOAGULANT THERAPY
  9. METHYLPREDNISOLONE SODIUM SUCCINATE. [Suspect]
     Active Substance: METHYLPREDNISOLONE SODIUM SUCCINATE
     Indication: CHRONIC OBSTRUCTIVE PULMONARY DISEASE
     Dosage: UNK

REACTIONS (5)
  - Skin atrophy [Recovered/Resolved]
  - Skin necrosis [Recovered/Resolved]
  - Subcutaneous haematoma [Recovered/Resolved]
  - Compartment syndrome [Recovered/Resolved]
  - Skin ulcer [Recovered/Resolved]
